FAERS Safety Report 7919901-2 (Version None)
Quarter: 2011Q4

REPORT INFORMATION
  Report Type: 
  Country: None (occurrence: None)
  Receive Date: 20111117
  Receipt Date: 20110811
  Transmission Date: 20120403
  Serious: No
  Sender: FDA-Public Use
  Company Number: US-BAYER-2011-073736

PATIENT
  Age: 68 Year
  Sex: Female
  Weight: 73 kg

DRUGS (4)
  1. ALEVE (CAPLET) [Suspect]
     Indication: ARTHRITIS
     Dosage: 1 U, BID
     Dates: start: 20110701
  2. ASPIRIN [Concomitant]
  3. PRAVASTATIN [Concomitant]
  4. PINNENOL [Concomitant]

REACTIONS (1)
  - NO ADVERSE EVENT [None]
